FAERS Safety Report 12883065 (Version 7)
Quarter: 2017Q2

REPORT INFORMATION
  Report Type: Report from Study
  Country: NZ (occurrence: NZ)
  Receive Date: 20161025
  Receipt Date: 20170425
  Transmission Date: 20170830
  Serious: Yes (Other)
  Sender: FDA-Public Use
  Company Number: PHHY2016NZ097145

PATIENT
  Age: 19 Year
  Sex: Female
  Weight: 61.55 kg

DRUGS (10)
  1. NORTRIPTYLINE [Concomitant]
     Active Substance: NORTRIPTYLINE
     Indication: NEURALGIA
     Dosage: 10 MG, NOCTE
     Route: 065
  2. SALBUTAMOL [Concomitant]
     Active Substance: ALBUTEROL
     Indication: ASTHMA
     Dosage: PUFFS, PRN
     Route: 065
  3. LDK378 [Suspect]
     Active Substance: CERITINIB
     Dosage: 300 MG, QD
     Route: 048
     Dates: start: 20161006, end: 20170323
  4. LDK378 [Suspect]
     Active Substance: CERITINIB
     Indication: NEUROBLASTOMA
     Dosage: 750 MG, QD
     Route: 048
     Dates: start: 20160624, end: 20160811
  5. LDK378 [Suspect]
     Active Substance: CERITINIB
     Dosage: 450 MG, QD
     Route: 048
     Dates: start: 20160929, end: 20161005
  6. LOCOID [Concomitant]
     Active Substance: HYDROCORTISONE BUTYRATE
     Indication: ECZEMA
     Dosage: UNK UNK, PRN
     Route: 065
  7. AVA 20 ED [Concomitant]
     Indication: OVARIAN FAILURE
     Dosage: UNK UNK, QD
     Route: 065
  8. TRAMADOL. [Concomitant]
     Active Substance: TRAMADOL
     Indication: CHEST PAIN
     Dosage: 50 MG, QID
     Route: 065
  9. LDK378 [Suspect]
     Active Substance: CERITINIB
     Dosage: 600 MG, QD (NOCTE)
     Route: 048
     Dates: start: 20160811, end: 20160922
  10. TRAMADOL. [Concomitant]
     Active Substance: TRAMADOL
     Indication: BACK PAIN
     Dosage: 50 MG, BID
     Route: 065

REACTIONS (23)
  - Weight decreased [Recovering/Resolving]
  - Renal disorder [Not Recovered/Not Resolved]
  - Fatigue [Not Recovered/Not Resolved]
  - Gastrooesophageal reflux disease [Not Recovered/Not Resolved]
  - Headache [Not Recovered/Not Resolved]
  - Gamma-glutamyltransferase increased [Recovering/Resolving]
  - Blood phosphorus decreased [Unknown]
  - Malignant neoplasm progression [Not Recovered/Not Resolved]
  - Blood creatinine increased [Not Recovered/Not Resolved]
  - Back pain [Not Recovered/Not Resolved]
  - Pleural effusion [Unknown]
  - Neuroblastoma [Not Recovered/Not Resolved]
  - Hepatobiliary disease [Not Recovered/Not Resolved]
  - Nausea [Recovering/Resolving]
  - Pleuritic pain [Not Recovered/Not Resolved]
  - Hypokalaemia [Not Recovered/Not Resolved]
  - Aspartate aminotransferase increased [Not Recovered/Not Resolved]
  - Musculoskeletal pain [Not Recovered/Not Resolved]
  - Lethargy [Not Recovered/Not Resolved]
  - Alanine aminotransferase increased [Not Recovered/Not Resolved]
  - Chest pain [Not Recovered/Not Resolved]
  - Hyperuricaemia [Not Recovered/Not Resolved]
  - Diarrhoea [Recovering/Resolving]

NARRATIVE: CASE EVENT DATE: 20160713
